FAERS Safety Report 15093384 (Version 1)
Quarter: 2018Q2

REPORT INFORMATION
  Report Type: Report from Study
  Country: US (occurrence: US)
  Receive Date: 20180629
  Receipt Date: 20180629
  Transmission Date: 20180711
  Serious: No
  Sender: FDA-Public Use
  Company Number: US-IPSEN BIOPHARMACEUTICALS, INC.-2017-12329

PATIENT
  Sex: Male

DRUGS (1)
  1. INCRELEX [Suspect]
     Active Substance: MECASERMIN
     Indication: PRIMARY INSULIN LIKE GROWTH FACTOR-1 DEFICIENCY
     Dosage: NOT REPORTED
     Route: 065

REACTIONS (12)
  - Blood glucose abnormal [Unknown]
  - Blood glucose decreased [Unknown]
  - Needle issue [Unknown]
  - Injection site swelling [Unknown]
  - Pain [Unknown]
  - Manufacturing production issue [Unknown]
  - Skin infection [Unknown]
  - Fear of injection [Unknown]
  - Injection site pain [Unknown]
  - Wrong technique in product usage process [Unknown]
  - Drug dose omission [Unknown]
  - Lack of administration site rotation [Unknown]
